FAERS Safety Report 5625870-0 (Version None)
Quarter: 2008Q1

REPORT INFORMATION
  Report Type: 
  Country: None (occurrence: None)
  Receive Date: 20080207
  Receipt Date: 20080207
  Transmission Date: 20080703
  Serious: Yes (Other)
  Sender: FDA-Public Use
  Company Number: None

PATIENT
  Age: 52 Year
  Sex: Male
  Weight: 99.7913 kg

DRUGS (1)
  1. HEPARIN [Suspect]
     Indication: CATHETERISATION CARDIAC
     Dosage: 9000 UNITS ONE TIME IV BOLUS
     Route: 040
     Dates: start: 20080114, end: 20080114

REACTIONS (1)
  - ABDOMINAL PAIN UPPER [None]
